FAERS Safety Report 6202195-6 (Version None)
Quarter: 2009Q2

REPORT INFORMATION
  Report Type: 
  Country: None (occurrence: None)
  Receive Date: 20090526
  Receipt Date: 20090519
  Transmission Date: 20091009
  Serious: Yes (Death, Hospitalization)
  Sender: FDA-Public Use
  Company Number: US-PFIZER INC-2005097721

PATIENT
  Sex: Male
  Weight: 48.99 kg

DRUGS (9)
  1. MARAVIROC [Suspect]
     Indication: HIV INFECTION
     Dosage: UNK
     Route: 048
     Dates: start: 20050503, end: 20050705
  2. VICODIN [Concomitant]
     Route: 048
  3. NEURONTIN [Concomitant]
     Route: 048
  4. NORTRIPTYLINE HCL [Concomitant]
     Route: 048
  5. MORPHINE [Concomitant]
     Route: 048
  6. MEPRON [Concomitant]
     Route: 048
  7. BISACODYL [Concomitant]
     Route: 048
  8. SENNA [Concomitant]
     Route: 048
     Dates: start: 20050518
  9. ANDROGEL [Concomitant]
     Route: 048
     Dates: start: 20050601

REACTIONS (1)
  - PNEUMONIA [None]
